FAERS Safety Report 7042272-3 (Version None)
Quarter: 2010Q4

REPORT INFORMATION
  Report Type: 
  Country: None (occurrence: None)
  Receive Date: 20101013
  Receipt Date: 20100609
  Transmission Date: 20110411
  Serious: No
  Sender: FDA-Public Use
  Company Number: US-ASTRAZENECA-2010SE26948

PATIENT
  Sex: Female

DRUGS (2)
  1. SYMBICORT [Suspect]
     Dosage: 80/4.5, 2 PUFFS
     Route: 055
     Dates: start: 20070101
  2. SYMBICORT [Suspect]
     Dosage: 80/4.5 2 PUFFS
     Route: 055
     Dates: start: 20100501

REACTIONS (2)
  - DYSPNOEA [None]
  - INTENTIONAL DRUG MISUSE [None]
